FAERS Safety Report 17051430 (Version 2)
Quarter: 2019Q4

REPORT INFORMATION
  Report Type: Spontaneous
  Country: US (occurrence: US)
  Receive Date: 20191120
  Receipt Date: 20191224
  Transmission Date: 20200122
  Serious: No
  Sender: FDA-Public Use
  Company Number: US-CELGENEUS-USA-20191105104

PATIENT
  Age: 78 Year
  Sex: Male

DRUGS (5)
  1. OTEZLA [Suspect]
     Active Substance: APREMILAST
     Dosage: 60 MILLIGRAM
     Route: 048
     Dates: start: 20191029
  2. OTEZLA [Suspect]
     Active Substance: APREMILAST
     Indication: PSORIASIS
     Dosage: STARTER PACK
     Route: 048
  3. CALCIPOTRINE [Concomitant]
     Indication: PSORIASIS
     Dosage: AS NEEDED
     Route: 065
     Dates: start: 20191029
  4. CLOBETASOL [Concomitant]
     Active Substance: CLOBETASOL
     Indication: PSORIASIS
     Dosage: FOR 2 WEEKS
     Route: 065
     Dates: start: 20191029
  5. TAZAROTENE. [Concomitant]
     Active Substance: TAZAROTENE
     Indication: PSORIASIS
     Dosage: FOR 2 WEEKS
     Route: 065
     Dates: start: 20191029

REACTIONS (1)
  - Nausea [Recovered/Resolved]

NARRATIVE: CASE EVENT DATE: 20191112
